FAERS Safety Report 4288367-9 (Version None)
Quarter: 2004Q1

REPORT INFORMATION
  Report Type: 
  Country: None (occurrence: None)
  Receive Date: 20040209
  Receipt Date: 20030919
  Transmission Date: 20041129
  Serious: Yes (Other)
  Sender: FDA-Public Use
  Company Number: US-GLAXOSMITHKLINE-A0426603A

PATIENT
  Sex: Male

DRUGS (1)
  1. PAXIL [Suspect]
     Indication: DEPRESSION
     Dates: start: 20030903, end: 20030915

REACTIONS (4)
  - AMNESIA [None]
  - HYPERHIDROSIS [None]
  - SEXUAL DYSFUNCTION [None]
  - SYNCOPE [None]
